FAERS Safety Report 21612183 (Version 1)
Quarter: 2022Q4

REPORT INFORMATION
  Report Type: Spontaneous
  Country: FR (occurrence: FR)
  Receive Date: 20221118
  Receipt Date: 20221118
  Transmission Date: 20230113
  Serious: Yes (Other)
  Sender: FDA-Public Use
  Company Number: None

PATIENT
  Age: 56 Year
  Sex: Female
  Weight: 53 kg

DRUGS (2)
  1. ZOLEDRONIC ACID ANHYDROUS [Suspect]
     Active Substance: ZOLEDRONIC ACID ANHYDROUS
     Indication: Osteoporosis
     Dosage: ACIDE ZOLEDRONIQUE ANHYDRE , UNIT DOSE : 1 DF   , FREQUENCY TIME :   1 TOTAL
     Dates: start: 202204
  2. RISEDRONATE SODIUM [Suspect]
     Active Substance: RISEDRONATE SODIUM
     Indication: Osteoporosis
     Dosage: RISEDRONATE MONOSODIQUE , UNIT DOSE : 35 MG   , FREQUENCY TIME :   1 WEEKS
     Dates: start: 202110

REACTIONS (2)
  - Optic neuritis [Recovering/Resolving]
  - Eye inflammation [Recovered/Resolved]

NARRATIVE: CASE EVENT DATE: 20211001
